FAERS Safety Report 25531144 (Version 1)
Quarter: 2025Q3

REPORT INFORMATION
  Report Type: Spontaneous
  Country: US (occurrence: US)
  Receive Date: 20250708
  Receipt Date: 20250708
  Transmission Date: 20251020
  Serious: No
  Sender: CALLIDITAS THERAPEUTICS AB
  Company Number: US-Calliditas-2025CAL01867

PATIENT
  Age: 30 Year
  Sex: Male

DRUGS (6)
  1. TARPEYO [Suspect]
     Active Substance: BUDESONIDE
     Indication: IgA nephropathy
     Route: 048
     Dates: start: 202410
  2. CALCIUM [Concomitant]
     Active Substance: CALCIUM
  3. FINASTERIDE [Concomitant]
     Active Substance: FINASTERIDE
  4. LOSARTAN [Concomitant]
     Active Substance: LOSARTAN
  5. MAGNESIUM CITRATE [Concomitant]
     Active Substance: MAGNESIUM CITRATE
  6. ZINC [Concomitant]
     Active Substance: ZINC

REACTIONS (2)
  - Swelling face [Not Recovered/Not Resolved]
  - Weight increased [Not Recovered/Not Resolved]
